FAERS Safety Report 8589295-0 (Version None)
Quarter: 2012Q3

REPORT INFORMATION
  Report Type: 
  Country: None (occurrence: None)
  Receive Date: 20120813
  Receipt Date: 20120807
  Transmission Date: 20120928
  Serious: No
  Sender: FDA-Public Use
  Company Number: US-B.I. PHARMACEUTICALS,INC./RIDGEFIELD-2012-BP-17753BP

PATIENT
  Sex: Female

DRUGS (7)
  1. SPIRIVA [Suspect]
     Indication: CHRONIC OBSTRUCTIVE PULMONARY DISEASE
     Dosage: 18 MCG
     Route: 055
     Dates: start: 20040101
  2. OXYBUTYNIN [Concomitant]
     Indication: BLADDER DISORDER
     Route: 048
     Dates: start: 20110801
  3. ROPINIROLE [Concomitant]
     Indication: SLEEP DISORDER
     Route: 048
  4. ADVAIR DISKUS 100/50 [Concomitant]
     Indication: CHRONIC OBSTRUCTIVE PULMONARY DISEASE
     Route: 055
  5. EFFEXOR XR [Concomitant]
     Indication: DEPRESSION
     Dosage: 150 MG
     Route: 048
  6. LORAZEPAM [Concomitant]
     Indication: SLEEP DISORDER
     Dosage: 0.5 MG
     Route: 048
  7. MULTI-VITAMIN [Concomitant]
     Indication: SUPPLEMENTATION THERAPY
     Route: 048

REACTIONS (3)
  - ALOPECIA [None]
  - BREAST PAIN [None]
  - DRY SKIN [None]
